FAERS Safety Report 9343655 (Version 2)
Quarter: 2013Q3

REPORT INFORMATION
  Report Type: Spontaneous
  Country: JP (occurrence: None)
  Receive Date: 20130610
  Receipt Date: 20130719
  Transmission Date: 20140515
  Serious: Yes (Death, Other)
  Sender: FDA-Public Use
  Company Number: JP-011937

PATIENT
  Age: 74 Year
  Sex: Male
  Weight: 60 kg

DRUGS (10)
  1. GONAX [Suspect]
     Indication: PROSTATE CANCER
     Dosage: (240 MG, TOTAL)
     Route: 058
     Dates: start: 20130307, end: 20130307
  2. TOWAMIN [Concomitant]
  3. BAYASPIRIN [Concomitant]
  4. PROTECADIN [Concomitant]
  5. FERROMIA /00023520/ [Concomitant]
  6. CINAL [Concomitant]
  7. ESTRACYT /00327002/ [Concomitant]
  8. ALOSENN /02118001/ [Concomitant]
  9. LOXONIN [Concomitant]
  10. REBAMIPIDE [Concomitant]

REACTIONS (5)
  - Cardiac failure congestive [None]
  - Injection site pain [None]
  - Injection site erythema [None]
  - Injection site induration [None]
  - Decreased appetite [None]
